FAERS Safety Report 25347300 (Version 3)
Quarter: 2025Q3

REPORT INFORMATION
  Report Type: Spontaneous
  Country: MX (occurrence: MX)
  Receive Date: 20250522
  Receipt Date: 20250724
  Transmission Date: 20251021
  Serious: Yes (Death)
  Sender: ELI LILLY AND COMPANY
  Company Number: MX-ELI_LILLY_AND_COMPANY-MX202505016957

PATIENT
  Age: 82 Year
  Sex: Female
  Weight: 46 kg

DRUGS (3)
  1. FORTEO [Suspect]
     Active Substance: TERIPARATIDE
     Indication: Osteoporosis
     Dosage: 1 INJECTION, ONCE DAILY AT NIGHT
     Route: 058
     Dates: start: 202408
  2. METFORMIN [Concomitant]
     Active Substance: METFORMIN HYDROCHLORIDE
     Indication: Diabetes mellitus
     Dosage: 800 MG, DAILY
     Route: 065
  3. LOSARTAN [Concomitant]
     Active Substance: LOSARTAN
     Indication: Hypertension
     Dosage: 1 DOSAGE FORM, DAILY
     Route: 065

REACTIONS (6)
  - Gastrointestinal disorder [Fatal]
  - Decreased appetite [Unknown]
  - Constipation [Unknown]
  - Vomiting [Unknown]
  - Feeding disorder [Unknown]
  - Nausea [Unknown]

NARRATIVE: CASE EVENT DATE: 20250514
